FAERS Safety Report 14737698 (Version 1)
Quarter: 2018Q2

REPORT INFORMATION
  Report Type: Spontaneous
  Country: ES (occurrence: ES)
  Receive Date: 20180409
  Receipt Date: 20180409
  Transmission Date: 20180711
  Serious: Yes (Other)
  Sender: FDA-Public Use
  Company Number: ES-PFIZER INC-2018142471

PATIENT
  Age: 60 Year
  Sex: Male

DRUGS (1)
  1. XALATAN [Suspect]
     Active Substance: LATANOPROST
     Indication: GLAUCOMA
     Dosage: 1 GTT, 1X/DAY (ONE DROP EVERY 24 HOURS)
     Route: 047
     Dates: start: 20080409, end: 20180228

REACTIONS (1)
  - Ocular pemphigoid [Recovering/Resolving]

NARRATIVE: CASE EVENT DATE: 20180112
